FAERS Safety Report 12877761 (Version 2)
Quarter: 2016Q4

REPORT INFORMATION
  Report Type: Spontaneous
  Country: US (occurrence: US)
  Receive Date: 20161024
  Receipt Date: 20161206
  Transmission Date: 20170207
  Serious: No
  Sender: FDA-Public Use
  Company Number: US-PFIZER INC-2016490312

PATIENT
  Sex: Female

DRUGS (2)
  1. PREMARIN [Suspect]
     Active Substance: ESTROGENS, CONJUGATED
     Indication: MENOPAUSE
     Dosage: 0.625 MG, DAILY
     Dates: start: 20160725, end: 20160912
  2. PREMARIN [Suspect]
     Active Substance: ESTROGENS, CONJUGATED
     Indication: NIGHT SWEATS

REACTIONS (4)
  - Breast enlargement [Recovered/Resolved]
  - Drug ineffective [Recovered/Resolved]
  - Breast pain [Recovered/Resolved]
  - Breast swelling [Recovered/Resolved]

NARRATIVE: CASE EVENT DATE: 20160808
